FAERS Safety Report 9096144 (Version 1)
Quarter: 2013Q1

REPORT INFORMATION
  Report Type: Spontaneous
  Country: US (occurrence: US)
  Receive Date: 20130207
  Receipt Date: 20130207
  Transmission Date: 20140127
  Serious: Yes (Other)
  Sender: FDA-Public Use
  Company Number: US-PFIZER INC-2013002640

PATIENT
  Sex: Female

DRUGS (3)
  1. ROBITUSSIN DM [Suspect]
     Indication: NASOPHARYNGITIS
     Dosage: TWO TEASPOONS, ONCE A DAY
     Route: 048
     Dates: end: 20130103
  2. ROBITUSSIN DM [Suspect]
     Indication: COUGH
  3. BENICAR [Concomitant]
     Indication: HYPERTENSION
     Dosage: 20 MG, UNK

REACTIONS (3)
  - Blood pressure increased [Unknown]
  - Palpitations [Unknown]
  - Poor quality sleep [Unknown]
